FAERS Safety Report 8017252-1 (Version None)
Quarter: 2012Q1

REPORT INFORMATION
  Report Type: 
  Country: None (occurrence: None)
  Receive Date: 20120102
  Receipt Date: 20111226
  Transmission Date: 20120608
  Serious: Yes (Hospitalization, Other)
  Sender: FDA-Public Use
  Company Number: PHHY2011JP108310

PATIENT
  Age: 70 Year
  Sex: Male
  Weight: 54 kg

DRUGS (11)
  1. STEROIDS [Concomitant]
  2. PANTOSIN [Concomitant]
     Route: 048
  3. ZOMETA [Suspect]
     Indication: METASTASES TO BONE
     Dosage: 4 MG, PER ADMINISTRATION
     Route: 041
     Dates: end: 20111114
  4. OXYCONTIN [Concomitant]
     Route: 048
  5. ZYPREXA [Concomitant]
     Route: 048
  6. DECADRON [Concomitant]
     Route: 048
  7. TALION [Concomitant]
     Route: 048
  8. LANSOPRAZOLE [Concomitant]
  9. SENNOSIDE [Concomitant]
     Route: 048
  10. MAGNESIUM OXIDE [Concomitant]
     Route: 048
  11. MOBIC [Concomitant]

REACTIONS (9)
  - FISTULA [None]
  - PAIN IN JAW [None]
  - PYREXIA [None]
  - OSTEOMYELITIS [None]
  - ABSCESS JAW [None]
  - OSTEONECROSIS OF JAW [None]
  - PURULENT DISCHARGE [None]
  - EXPOSED BONE IN JAW [None]
  - SWELLING [None]
